FAERS Safety Report 7757674 (Version 2)
Quarter: 2012Q4

REPORT INFORMATION
  Report Type: 
  Country: US (occurrence: US)
  Receive Date: 20110112
  Receipt Date: 20121106
  Transmission Date: 20130627
  Serious: Yes (Other)
  Sender: FDA-Public Use
  Company Number: US-PFIZER INC-HQWYE699411OCT04

PATIENT
  Age: 59 Year
  Sex: Female
  Weight: 63 kg

DRUGS (12)
  1. PREMARIN [Suspect]
     Indication: HORMONE REPLACEMENT THERAPY
     Dosage: 1.25 mg, UNK
     Route: 048
     Dates: start: 1985, end: 2001
  2. PROVERA [Suspect]
     Indication: HORMONE REPLACEMENT THERAPY
     Dosage: UNK
     Route: 048
     Dates: start: 1985, end: 2001
  3. MEDROXYPROGESTERONE ACETATE [Suspect]
     Indication: HORMONE REPLACEMENT THERAPY
     Dosage: 5 mg, UNK
     Route: 048
     Dates: start: 2000, end: 2001
  4. MEDROXYPROGESTERONE ACETATE [Suspect]
     Indication: HORMONE REPLACEMENT THERAPY
     Dosage: 5 mg, UNK
     Dates: start: 1999, end: 2000
  5. CYCRIN [Suspect]
     Indication: HORMONE REPLACEMENT THERAPY
     Dosage: 5 mg, UNK
     Route: 048
     Dates: start: 1985, end: 2000
  6. LIPITOR [Concomitant]
     Indication: HIGH CHOLESTEROL
     Dosage: 20 mg, UNK
     Dates: end: 2004
  7. SYNTHROID [Concomitant]
     Indication: HYPOTHYROIDISM
     Dosage: 0.125 mg, UNK
     Dates: end: 2004
  8. BAYCOL [Concomitant]
     Indication: HIGH CHOLESTEROL
     Dosage: UNK
     Dates: end: 2004
  9. IMDUR [Concomitant]
     Indication: CARDIAC DISORDER
     Dosage: 30 mg, UNK
  10. CARDIZEM [Concomitant]
     Indication: CARDIAC DISORDER
     Dosage: 240 mg, UNK
     Dates: start: 1999
  11. ISOSORBIDE [Concomitant]
     Indication: CARDIAC DISORDER
     Dosage: 0.3 mg, UNK
     Dates: start: 1999
  12. XANAX [Concomitant]
     Indication: ANXIETY
     Dosage: 0.25 mg, UNK

REACTIONS (1)
  - Invasive ductal breast carcinoma [Unknown]
